FAERS Safety Report 4319508-2 (Version None)
Quarter: 2004Q1

REPORT INFORMATION
  Report Type: 
  Country: None (occurrence: None)
  Receive Date: 20040319
  Receipt Date: 20030319
  Transmission Date: 20041129
  Serious: No
  Sender: FDA-Public Use
  Company Number: US-BRISTOL-MYERS SQUIBB COMPANY-12216230

PATIENT
  Age: 49 Year
  Sex: Male
  Weight: 73 kg

DRUGS (1)
  1. KENALOG IN ORABASE [Suspect]
     Indication: GLOSSITIS
     Dosage: DOSING: 3-4 TIMES DAILY
     Route: 061

REACTIONS (1)
  - DRUG INEFFECTIVE [None]
